FAERS Safety Report 8494729-6 (Version None)
Quarter: 2012Q3

REPORT INFORMATION
  Report Type: 
  Country: None (occurrence: None)
  Receive Date: 20120709
  Receipt Date: 20120702
  Transmission Date: 20120928
  Serious: Yes (Death)
  Sender: FDA-Public Use
  Company Number: HR-JNJFOC-20120702235

PATIENT
  Age: 59 Year
  Sex: Male
  Weight: 69 kg

DRUGS (14)
  1. REMICADE [Suspect]
     Dosage: FIRST DOSE
     Route: 042
     Dates: start: 20100708
  2. REMICADE [Suspect]
     Dosage: FIFTH DOSE
     Route: 042
     Dates: start: 20101221
  3. LUBOR [Concomitant]
     Indication: PSORIATIC ARTHROPATHY
     Route: 065
     Dates: start: 20020101
  4. REMICADE [Suspect]
     Dosage: FOURTH DOSE
     Route: 042
     Dates: start: 20101020
  5. REMICADE [Suspect]
     Dosage: THIRD DOSE
     Route: 042
     Dates: start: 20100823
  6. FOLIC ACID [Concomitant]
     Indication: PSORIATIC ARTHROPATHY
     Route: 048
     Dates: start: 20040101
  7. PREDNISONE TAB [Concomitant]
     Indication: PSORIATIC ARTHROPATHY
     Route: 065
     Dates: start: 20020101
  8. METHOTREXATE [Suspect]
     Indication: PSORIATIC ARTHROPATHY
     Route: 065
     Dates: start: 20030101
  9. ARAVA [Concomitant]
     Indication: PSORIATIC ARTHROPATHY
     Route: 065
     Dates: start: 20051101
  10. SULFASALAZINE [Concomitant]
     Indication: PSORIATIC ARTHROPATHY
     Route: 065
     Dates: start: 20020101
  11. REMICADE [Suspect]
     Dosage: SECOND DOSE
     Route: 042
     Dates: start: 20100722
  12. REMICADE [Suspect]
     Indication: PSORIATIC ARTHROPATHY
     Dosage: SEVENTH DOSE
     Route: 042
     Dates: end: 20110504
  13. REMICADE [Suspect]
     Dosage: SIXTH DOSE
     Route: 042
     Dates: start: 20110216
  14. PANTOPRAZOLE [Concomitant]
     Indication: PROPHYLAXIS
     Route: 065
     Dates: start: 20030101

REACTIONS (2)
  - SEPSIS [None]
  - PNEUMONIA [None]
